FAERS Safety Report 25314480 (Version 1)
Quarter: 2025Q2

REPORT INFORMATION
  Report Type: Spontaneous
  Country: JP (occurrence: JP)
  Receive Date: 20250514
  Receipt Date: 20250514
  Transmission Date: 20250717
  Serious: Yes (Other)
  Sender: BRISTOL-MYERS SQUIBB COMPANY
  Company Number: JP-MLMSERVICE-20250504-PI492700-00255-4

PATIENT
  Age: 84 Year
  Sex: Male
  Weight: 61.5 kg

DRUGS (12)
  1. PACLITAXEL [Suspect]
     Active Substance: PACLITAXEL
     Indication: Lung squamous cell carcinoma stage III
     Dosage: DAYS 1, 8, AND 15 ONCE EVERY 3 WEEKS  CYCLE 1
  2. PACLITAXEL [Suspect]
     Active Substance: PACLITAXEL
     Indication: Lymphangiosis carcinomatosa
  3. PACLITAXEL [Suspect]
     Active Substance: PACLITAXEL
     Indication: Metastases to pleura
  4. CARBOPLATIN [Suspect]
     Active Substance: CARBOPLATIN
     Indication: Lung squamous cell carcinoma stage III
     Dosage: AREA UNDER THE CURVE OF 5 MG/ML?MIN ON DAY 1 CYCLE 1
  5. CARBOPLATIN [Suspect]
     Active Substance: CARBOPLATIN
     Indication: Lymphangiosis carcinomatosa
     Dosage: AREA UNDER THE CURVE 4.5 MG/ML-MIN, CYCLE 3
  6. CARBOPLATIN [Suspect]
     Active Substance: CARBOPLATIN
     Indication: Metastases to pleura
  7. FAMOTIDINE [Concomitant]
     Active Substance: FAMOTIDINE
  8. EDOXABAN [Concomitant]
     Active Substance: EDOXABAN
  9. MEFRUSIDE [Concomitant]
     Active Substance: MEFRUSIDE
  10. LIMAPROST [Concomitant]
     Active Substance: LIMAPROST
  11. TRIAZOLAM [Concomitant]
     Active Substance: TRIAZOLAM
  12. ALLOPURINOL [Concomitant]
     Active Substance: ALLOPURINOL

REACTIONS (2)
  - Inappropriate antidiuretic hormone secretion [Recovering/Resolving]
  - Neutropenia [Unknown]
